FAERS Safety Report 19903671 (Version 1)
Quarter: 2021Q4

REPORT INFORMATION
  Report Type: Other
  Country: US (occurrence: US)
  Receive Date: 20211001
  Receipt Date: 20211001
  Transmission Date: 20220303
  Serious: Yes (Hospitalization, Other)
  Sender: FDA-Public Use
  Company Number: US-PHARMGEN-000015

PATIENT
  Age: 82 Year
  Sex: Female

DRUGS (1)
  1. NITROFURANTOIN [Suspect]
     Active Substance: NITROFURANTOIN
     Indication: Cystitis

REACTIONS (4)
  - Sepsis [Recovered/Resolved]
  - Eosinophilic pleural effusion [Recovered/Resolved]
  - Treatment failure [Unknown]
  - Pyelonephritis acute [Recovered/Resolved]
